FAERS Safety Report 6590366-9 (Version None)
Quarter: 2010Q1

REPORT INFORMATION
  Report Type: 
  Country: None (occurrence: None)
  Receive Date: 20100219
  Receipt Date: 20100216
  Transmission Date: 20100710
  Serious: Yes (Hospitalization)
  Sender: FDA-Public Use
  Company Number: FR-SANOFI-AVENTIS-2010SA008976

PATIENT
  Age: 77 Year
  Sex: Female

DRUGS (4)
  1. ELOXATIN [Suspect]
     Indication: COLON CANCER
     Dosage: DOSE:5 MILLIGRAM(S)/MILLILITRE
     Route: 041
     Dates: start: 20090101, end: 20091102
  2. BONIVA [Interacting]
     Indication: OSTEOPOROSIS
     Dates: start: 20080101, end: 20091201
  3. FLUOROURACIL [Interacting]
     Indication: COLON CANCER
     Dates: start: 20090101, end: 20091102
  4. COKENZEN [Concomitant]
     Route: 048

REACTIONS (2)
  - DERMATOMYOSITIS [None]
  - DRUG INTERACTION [None]
